FAERS Safety Report 6815480-1 (Version None)
Quarter: 2010Q2

REPORT INFORMATION
  Report Type: 
  Country: None (occurrence: None)
  Receive Date: 20100629
  Receipt Date: 20100623
  Transmission Date: 20101027
  Serious: Yes (Other)
  Sender: FDA-Public Use
  Company Number: 2010SP035356

PATIENT
  Age: 51 Year
  Sex: Female

DRUGS (6)
  1. CELESTONE [Suspect]
     Indication: PREMEDICATION
  2. BI PROFENID [Concomitant]
  3. LEVOTHYROXINE SODIUM [Concomitant]
  4. DOLIPRANE [Concomitant]
  5. AVAMYS [Concomitant]
  6. AERIUS [Concomitant]

REACTIONS (2)
  - ERYTHEMA [None]
  - RESPIRATORY DISORDER [None]
